FAERS Safety Report 26062411 (Version 1)
Quarter: 2025Q4

REPORT INFORMATION
  Report Type: Spontaneous
  Country: US (occurrence: US)
  Receive Date: 20251119
  Receipt Date: 20251119
  Transmission Date: 20260117
  Serious: No
  Sender: ROCHE
  Company Number: US-ROCHE-10000432999

PATIENT
  Sex: Female
  Weight: 77.11 kg

DRUGS (6)
  1. RITUXAN [Suspect]
     Active Substance: RITUXIMAB
     Indication: Product used for unknown indication
     Route: 042
     Dates: start: 202506
  2. CELLCEPT [Suspect]
     Active Substance: MYCOPHENOLATE MOFETIL
     Indication: Autoimmune hepatitis
     Route: 065
  3. LEVOTHYROXINE [Concomitant]
     Active Substance: LEVOTHYROXINE
     Route: 048
     Dates: start: 1969
  4. IMURAN [Concomitant]
     Active Substance: AZATHIOPRINE
     Dosage: MORE DOSAGE INFORMATION: A PILL MORNING AND NIGHT
     Route: 048
     Dates: start: 202501
  5. GABAPENTIN [Concomitant]
     Active Substance: GABAPENTIN
     Indication: Neuropathy peripheral
     Route: 048
     Dates: start: 202406
  6. ZONISAMIDE [Concomitant]
     Active Substance: ZONISAMIDE
     Indication: Myoclonus
     Route: 048

REACTIONS (11)
  - Fall [Unknown]
  - Hand fracture [Unknown]
  - Skin laceration [Unknown]
  - Balance disorder [Not Recovered/Not Resolved]
  - Concussion [Not Recovered/Not Resolved]
  - Dizziness [Not Recovered/Not Resolved]
  - Head injury [Unknown]
  - Off label use [Unknown]
  - Pain [Not Recovered/Not Resolved]
  - Muscular weakness [Unknown]
  - Antineutrophil cytoplasmic antibody increased [Unknown]

NARRATIVE: CASE EVENT DATE: 20250601
